FAERS Safety Report 16748111 (Version 3)
Quarter: 2019Q3

REPORT INFORMATION
  Report Type: Report from Study
  Country: US (occurrence: US)
  Receive Date: 20190827
  Receipt Date: 20190927
  Transmission Date: 20191005
  Serious: Yes (Hospitalization, Other)
  Sender: FDA-Public Use
  Company Number: US-TAKEDA-2018TUS016231

PATIENT
  Sex: Male

DRUGS (1)
  1. PONATINIB [Suspect]
     Active Substance: PONATINIB
     Indication: CHRONIC MYELOID LEUKAEMIA
     Dosage: 15 MILLIGRAM, QD
     Route: 048
     Dates: start: 201803

REACTIONS (12)
  - Muscular weakness [Unknown]
  - Cardiac failure [Unknown]
  - Fatigue [Unknown]
  - Diarrhoea [Unknown]
  - Hypotension [Unknown]
  - Oedema [Unknown]
  - Malaise [Unknown]
  - Nodule [Unknown]
  - Coronary artery occlusion [Unknown]
  - Dyspnoea [Unknown]
  - Atrial fibrillation [Unknown]
  - Asthenia [Unknown]
